FAERS Safety Report 14580381 (Version 1)
Quarter: 2018Q1

REPORT INFORMATION
  Report Type: Spontaneous
  Country: FR (occurrence: FR)
  Receive Date: 20180228
  Receipt Date: 20180228
  Transmission Date: 20180509
  Serious: Yes (Hospitalization)
  Sender: FDA-Public Use
  Company Number: FR-MERCK KGAA-2042690

PATIENT
  Age: 83 Year
  Sex: Female
  Weight: 59 kg

DRUGS (1)
  1. NOVOTHYROX [Suspect]
     Active Substance: LEVOTHYROXINE SODIUM
     Indication: HYPOTHYROIDISM
     Route: 048
     Dates: start: 201703, end: 201711

REACTIONS (7)
  - Insomnia [Recovered/Resolved]
  - Diarrhoea [Recovered/Resolved]
  - Fatigue [Recovering/Resolving]
  - Gastrointestinal pain [Recovered/Resolved]
  - Cardiac disorder [Not Recovered/Not Resolved]
  - Muscle spasms [Recovered/Resolved]
  - Sudden onset of sleep [Recovering/Resolving]

NARRATIVE: CASE EVENT DATE: 201704
